FAERS Safety Report 25132974 (Version 1)
Quarter: 2025Q1

REPORT INFORMATION
  Report Type: Spontaneous
  Country: US (occurrence: US)
  Receive Date: 20250328
  Receipt Date: 20250328
  Transmission Date: 20250409
  Serious: No
  Sender: AMGEN
  Company Number: US-AMGEN-USASP2025060197

PATIENT
  Age: 30 Year
  Sex: Male

DRUGS (2)
  1. PREDNISONE [Suspect]
     Active Substance: PREDNISONE
     Indication: HIV infection
     Route: 048
  2. PREDNISONE [Suspect]
     Active Substance: PREDNISONE
     Route: 048

REACTIONS (5)
  - Rash erythematous [Unknown]
  - Plasmacytosis [Unknown]
  - Herpes simplex [Unknown]
  - Rash [Recovered/Resolved]
  - Ulcer [Recovered/Resolved]
